FAERS Safety Report 7018238-6 (Version None)
Quarter: 2010Q3

REPORT INFORMATION
  Report Type: 
  Country: None (occurrence: None)
  Receive Date: 20100922
  Receipt Date: 20100910
  Transmission Date: 20110219
  Serious: Yes (Hospitalization)
  Sender: FDA-Public Use
  Company Number: 2010EU004308

PATIENT
  Sex: Female
  Weight: 74 kg

DRUGS (6)
  1. TACROLIMUS [Suspect]
     Indication: RENAL TRANSPLANT
     Dosage: 5 MG, /D, ORAL
     Route: 048
     Dates: start: 20070901
  2. PRENDISOLONE (PREDNISOLONE) [Concomitant]
  3. IMURAN [Concomitant]
  4. CALCICHEW D3 FORTE (CALCIUM CARBONATE, COLECALCIFEROL) [Concomitant]
  5. NITROFURANTOIN [Concomitant]
  6. FOLIC ACID [Concomitant]

REACTIONS (5)
  - CAESAREAN SECTION [None]
  - DRUG EXPOSURE DURING PREGNANCY [None]
  - HYPERTENSION [None]
  - PREGNANCY [None]
  - PREMATURE LABOUR [None]
